FAERS Safety Report 9468237 (Version 1)
Quarter: 2013Q3

REPORT INFORMATION
  Report Type: Spontaneous
  Country: US (occurrence: US)
  Receive Date: 20130821
  Receipt Date: 20130821
  Transmission Date: 20140515
  Serious: Yes (Other)
  Sender: FDA-Public Use
  Company Number: US-BAYER-2013-098597

PATIENT
  Sex: Female

DRUGS (1)
  1. AVELOX [Suspect]
     Indication: EAR INFECTION
     Dosage: 1 DF
     Dates: start: 20130812, end: 20130812

REACTIONS (7)
  - Aphagia [None]
  - Abasia [None]
  - Insomnia [None]
  - Dysphonia [None]
  - Heart rate increased [None]
  - Lower extremity mass [None]
  - Arthralgia [None]
